FAERS Safety Report 5136314-X (Version None)
Quarter: 2006Q4

REPORT INFORMATION
  Report Type: 
  Country: None (occurrence: None)
  Receive Date: 20061027
  Receipt Date: 20061020
  Transmission Date: 20070319
  Serious: Yes (Hospitalization)
  Sender: FDA-Public Use
  Company Number: FR-GLAXOSMITHKLINE-B0443635A

PATIENT
  Age: 39 Year
  Sex: Male

DRUGS (4)
  1. SERETIDE [Suspect]
     Dosage: 1000MCG PER DAY
     Route: 065
  2. RITONAVIR [Suspect]
     Indication: HIV INFECTION
     Route: 065
  3. ZIDOVUDINE [Concomitant]
     Indication: HIV INFECTION
     Route: 065
  4. LAMIVUDINE [Concomitant]
     Indication: HIV INFECTION
     Route: 065

REACTIONS (8)
  - ADRENAL CORTICAL INSUFFICIENCY [None]
  - AMYOTROPHY [None]
  - DRUG INTERACTION [None]
  - ERYTHEMA [None]
  - HYPERCORTICOIDISM [None]
  - OEDEMA PERIPHERAL [None]
  - SKIN LESION [None]
  - WEIGHT INCREASED [None]
